FAERS Safety Report 10726155 (Version 2)
Quarter: 2015Q1

REPORT INFORMATION
  Report Type: Spontaneous
  Country: IT (occurrence: IT)
  Receive Date: 20150121
  Receipt Date: 20150126
  Transmission Date: 20150721
  Serious: Yes (Life-Threatening)
  Sender: FDA-Public Use
  Company Number: IT-TEVA-534630ISR

PATIENT
  Age: 47 Year
  Sex: Female

DRUGS (2)
  1. DEPAKIN CHRONO - 300 MG COMPRESSE A RILASCIO PROLUNGATO - SANOFI S.P.A [Suspect]
     Active Substance: VALPROATE SODIUM
     Indication: PRODUCT USED FOR UNKNOWN INDICATION
     Dosage: 24000 MG TOTAL, MODIFIED-RELEASE TABLET
     Route: 048
     Dates: start: 20140628, end: 20140628
  2. OLANZAPINE. [Suspect]
     Active Substance: OLANZAPINE
     Indication: PRODUCT USED FOR UNKNOWN INDICATION
     Dosage: 120 MG TOTAL
     Dates: start: 20140628, end: 20140628

REACTIONS (3)
  - Sedation [Recovered/Resolved]
  - Intentional self-injury [Recovered/Resolved]
  - Drug abuse [Unknown]

NARRATIVE: CASE EVENT DATE: 20140628
